FAERS Safety Report 26167342 (Version 1)
Quarter: 2025Q4

REPORT INFORMATION
  Report Type: Spontaneous
  Country: AU (occurrence: AU)
  Receive Date: 20251217
  Receipt Date: 20251217
  Transmission Date: 20260118
  Serious: Yes (Other)
  Sender: ACCORD
  Company Number: None

PATIENT
  Age: 67 Year
  Sex: Male

DRUGS (2)
  1. METHOTREXATE SODIUM [Suspect]
     Active Substance: METHOTREXATE SODIUM
     Indication: Product used for unknown indication
  2. ISONIAZID [Concomitant]
     Active Substance: ISONIAZID

REACTIONS (3)
  - Enterovesical fistula [Unknown]
  - Sepsis [Unknown]
  - Off label use [Unknown]
